FAERS Safety Report 8340811-3 (Version None)
Quarter: 2012Q2

REPORT INFORMATION
  Report Type: 
  Country: None (occurrence: None)
  Receive Date: 20120507
  Receipt Date: 20120501
  Transmission Date: 20120825
  Serious: Yes (Death)
  Sender: FDA-Public Use
  Company Number: US-CELGENEUS-163-21880-12050108

PATIENT
  Sex: Male
  Weight: 64.922 kg

DRUGS (21)
  1. PREDNISONE [Concomitant]
     Dosage: 10 MILLIGRAM
     Route: 065
  2. AGGRENOX [Concomitant]
     Dosage: 200MG-25MG
     Route: 065
  3. CARVEDILOL [Concomitant]
     Dosage: 3.125 MILLIGRAM
     Route: 065
  4. FUROSEMIDE [Concomitant]
     Dosage: 20 MILLIGRAM
     Route: 065
  5. ZOMETA [Concomitant]
     Route: 041
  6. REVLIMID [Suspect]
     Indication: MULTIPLE MYELOMA
     Dosage: 15 MILLIGRAM
     Route: 048
     Dates: start: 20120305, end: 20120329
  7. CYANOCOBALAMIN [Concomitant]
     Route: 065
  8. DEXAMETHASONE [Concomitant]
     Dosage: 4 MILLIGRAM
     Route: 065
  9. SIMVASTATIN [Concomitant]
     Dosage: 20 MILLIGRAM
     Route: 065
  10. ADVAIR DISKUS 100/50 [Concomitant]
     Dosage: 250MCG/50MCG
     Route: 065
  11. LEVOTHYROXINE SODIUM [Concomitant]
     Dosage: 50 MICROGRAM
     Route: 065
  12. FINASTERIDE [Concomitant]
     Dosage: 5 MILLIGRAM
     Route: 065
  13. KLOR-CON [Concomitant]
     Dosage: 20 MILLIEQUIVALENTS
     Route: 065
  14. CARBIDOPA AND LEVODOPA [Concomitant]
     Dosage: 25/100MG
     Route: 065
  15. ULORIC [Concomitant]
     Dosage: 40 MILLIGRAM
     Route: 065
  16. JANUVIA [Concomitant]
     Dosage: 50 MILLIGRAM
     Route: 065
  17. ENULOSE [Concomitant]
     Dosage: 10GRAM/15ML
     Route: 065
  18. FERROUS SULFATE TAB [Concomitant]
     Dosage: 325 MILLIGRAM
     Route: 065
  19. ALBUTEROL SULFATE [Concomitant]
     Dosage: 2.5MG/3ML
     Route: 065
  20. DULCOLAX [Concomitant]
     Dosage: 10 MILLIGRAM
     Route: 065
  21. CETIRIZINE [Concomitant]
     Dosage: 10 MILLIGRAM
     Route: 065

REACTIONS (1)
  - DEATH [None]
